FAERS Safety Report 4877269-2 (Version None)
Quarter: 2006Q1

REPORT INFORMATION
  Report Type: 
  Country: None (occurrence: None)
  Receive Date: 20060109
  Receipt Date: 20051230
  Transmission Date: 20060701
  Serious: Yes (Death, Life-Threatening, Hospitalization, Other)
  Sender: FDA-Public Use
  Company Number: 2005-11-0087

PATIENT
  Age: 69 Year
  Sex: Female

DRUGS (2)
  1. TEMODAL [Suspect]
     Indication: GLIOBLASTOMA
     Dosage: 75 MG/M^2 QD ORAL
     Route: 048
     Dates: start: 20050705, end: 20050809
  2. RADIATION THERAPY [Concomitant]

REACTIONS (1)
  - PANCYTOPENIA [None]
